FAERS Safety Report 5254538-8 (Version None)
Quarter: 2007Q1

REPORT INFORMATION
  Report Type: 
  Country: None (occurrence: None)
  Receive Date: 20070302
  Receipt Date: 20070301
  Transmission Date: 20070707
  Serious: Yes (Other)
  Sender: FDA-Public Use
  Company Number: AU-BRISTOL-MYERS SQUIBB COMPANY-13696505

PATIENT
  Sex: Male

DRUGS (1)
  1. AVAPRO [Suspect]
     Route: 048

REACTIONS (5)
  - ACCIDENTAL OVERDOSE [None]
  - HEADACHE [None]
  - INSOMNIA [None]
  - MEDICATION ERROR [None]
  - TINNITUS [None]
